FAERS Safety Report 26037866 (Version 1)
Quarter: 2025Q4

REPORT INFORMATION
  Report Type: Spontaneous
  Country: US (occurrence: US)
  Receive Date: 20251112
  Receipt Date: 20251112
  Transmission Date: 20260117
  Serious: Yes (Life-Threatening, Other)
  Sender: BRACCO
  Company Number: US-BRACCO-2025US04343

PATIENT
  Age: 40 Year
  Sex: Male

DRUGS (3)
  1. LUMASON [Suspect]
     Active Substance: SULFUR HEXAFLUORIDE
     Dosage: 1 ML
  2. LUMASON [Suspect]
     Active Substance: SULFUR HEXAFLUORIDE
     Dosage: 1 ML
  3. LUMASON [Suspect]
     Active Substance: SULFUR HEXAFLUORIDE
     Dosage: 1 ML

REACTIONS (1)
  - Anaphylactic reaction [Unknown]
